FAERS Safety Report 15201137 (Version 5)
Quarter: 2019Q1

REPORT INFORMATION
  Report Type: Spontaneous
  Country: US (occurrence: US)
  Receive Date: 20180726
  Receipt Date: 20190319
  Transmission Date: 20190417
  Serious: No
  Sender: FDA-Public Use
  Company Number: US-PFIZER INC-2018299594

PATIENT
  Age: 66 Year
  Sex: Female
  Weight: 63 kg

DRUGS (5)
  1. LYRICA [Suspect]
     Active Substance: PREGABALIN
     Indication: COMPLEX REGIONAL PAIN SYNDROME
     Dosage: 200 MG, 3X/DAY (1 CAPSULE THREE TIMES A DAY 30 DAYS/ IN THE MORNING, AT 2PM, AND AT NIGHT)
  2. OMEPRAZOLE. [Concomitant]
     Active Substance: OMEPRAZOLE
     Dosage: 60 MG, 2X/DAY (I TAKE TWO OF THEM IN THE MORNING AND ONE AT NIGHT AT DINNER TIME)
  3. LYRICA [Suspect]
     Active Substance: PREGABALIN
     Indication: NERVE INJURY
     Dosage: 200 MG, 3X/DAY (IN THE MORNING/ONE IN AFTERNOON/ONE AROUND 7^O CLOCK, ONE AROUND 2/ ONE AROUND10:30)
  4. LYRICA [Suspect]
     Active Substance: PREGABALIN
     Indication: NEURALGIA
     Dosage: 100 MG, 3X/DAY
     Route: 048
  5. LYRICA [Suspect]
     Active Substance: PREGABALIN
     Indication: NEUROPATHY PERIPHERAL
     Dosage: 200 MG, 3X/DAY
     Route: 048
     Dates: start: 2015

REACTIONS (8)
  - Drug effect incomplete [Unknown]
  - Fall [Unknown]
  - Balance disorder [Unknown]
  - Weight increased [Unknown]
  - Ligament sprain [Not Recovered/Not Resolved]
  - Gait disturbance [Unknown]
  - Head injury [Unknown]
  - Product use issue [Unknown]
